FAERS Safety Report 18466972 (Version 2)
Quarter: 2021Q4

REPORT INFORMATION
  Report Type: Report from Study
  Country: US (occurrence: US)
  Receive Date: 20201105
  Receipt Date: 20211108
  Transmission Date: 20220303
  Serious: Yes (Death)
  Sender: FDA-Public Use
  Company Number: US-PFIZER INC-2020425155

PATIENT
  Age: 20 Year
  Sex: Male

DRUGS (1)
  1. FENTANYL CITRATE [Suspect]
     Active Substance: FENTANYL CITRATE
     Dosage: UNK

REACTIONS (12)
  - Toxicity to various agents [Fatal]
  - Ventricular arrhythmia [Fatal]
  - Myocardial ischaemia [Fatal]
  - Acute lung injury [Fatal]
  - Respiratory depression [Fatal]
  - Coma [Fatal]
  - Depressed level of consciousness [Fatal]
  - Acute kidney injury [Fatal]
  - Hypotension [Fatal]
  - Bradypnoea [Fatal]
  - Metabolic acidosis [Fatal]
  - Anion gap [Fatal]
